FAERS Safety Report 24324208 (Version 1)
Quarter: 2024Q3

REPORT INFORMATION
  Report Type: Spontaneous
  Country: CN (occurrence: CN)
  Receive Date: 20240916
  Receipt Date: 20240916
  Transmission Date: 20241016
  Serious: Yes (Hospitalization)
  Sender: BAXTER
  Company Number: None

PATIENT
  Age: 75 Year
  Sex: Male
  Weight: 80 kg

DRUGS (12)
  1. CYCLOPHOSPHAMIDE [Suspect]
     Active Substance: CYCLOPHOSPHAMIDE
     Indication: B-cell lymphoma
     Dosage: 1 G, ONE TIME IN ONE DAY, DILUTED WITH 500 ML OF SODIUM CHLORIDE, D1
     Route: 041
     Dates: start: 20240821, end: 20240821
  2. CYCLOPHOSPHAMIDE [Suspect]
     Active Substance: CYCLOPHOSPHAMIDE
     Indication: Drug therapy
  3. RITUXIMAB [Suspect]
     Active Substance: RITUXIMAB
     Indication: B-cell lymphoma
     Dosage: 700 MILLIGRAM, ONE TIME IN ONE DAY, DILUTED WITH 700 ML OF SODIUM CHLORIDE, D0
     Route: 041
     Dates: start: 20240820, end: 20240820
  4. RITUXIMAB [Suspect]
     Active Substance: RITUXIMAB
     Indication: Drug therapy
  5. PIRARUBICIN HYDROCHLORIDE [Suspect]
     Active Substance: PIRARUBICIN HYDROCHLORIDE
     Indication: B-cell lymphoma
     Dosage: 40 MG, ONE TIME IN ONE DAY, DILUTED WITH 250 ML OF GLUCOSE, D1-2
     Route: 041
     Dates: start: 20240821, end: 20240822
  6. PIRARUBICIN HYDROCHLORIDE [Suspect]
     Active Substance: PIRARUBICIN HYDROCHLORIDE
     Indication: Drug therapy
  7. VINDESINE SULFATE [Suspect]
     Active Substance: VINDESINE SULFATE
     Indication: B-cell lymphoma
     Dosage: 20 MG, ONE TIME IN ONE DAY, DILUTED WITH 20 ML OF SODIUM CHLORIDE, D1
     Route: 041
     Dates: start: 20240821, end: 20240821
  8. VINDESINE SULFATE [Suspect]
     Active Substance: VINDESINE SULFATE
     Indication: Drug therapy
  9. SODIUM CHLORIDE [Suspect]
     Active Substance: SODIUM CHLORIDE
     Indication: Medication dilution
     Dosage: 500 ML, ONE TIME IN ONE DAY, USED TO DILUTE 1 G OF CYCLOPHOSPHAMIDE, D1
     Route: 041
     Dates: start: 20240821, end: 20240821
  10. SODIUM CHLORIDE [Suspect]
     Active Substance: SODIUM CHLORIDE
     Dosage: 700 ML, ONE TIME IN ONE DAY, DILUTED WITH 700 MG OF RITUXIMAB, D0
     Route: 041
     Dates: start: 20240820, end: 20240820
  11. SODIUM CHLORIDE [Suspect]
     Active Substance: SODIUM CHLORIDE
     Dosage: 20 ML, ONE TIME IN ONE DAY, DILUTED WITH 2 MG OF VINDESINE SULFATE, D1
     Route: 041
     Dates: start: 20240821, end: 20240821
  12. DEXTROSE [Suspect]
     Active Substance: DEXTROSE\DEXTROSE MONOHYDRATE
     Indication: Medication dilution
     Dosage: 250 ML, ONE TIME IN ONE DAY, USED TO DILUTE 20 MG OF PIRARUBICIN, D1-2
     Route: 041
     Dates: start: 20240821, end: 20240822

REACTIONS (3)
  - Diarrhoea [Recovering/Resolving]
  - Faeces discoloured [Recovering/Resolving]
  - Abdominal pain [Recovering/Resolving]

NARRATIVE: CASE EVENT DATE: 20240826
